FAERS Safety Report 4525149-4 (Version None)
Quarter: 2005Q1

REPORT INFORMATION
  Report Type: 
  Country: None (occurrence: None)
  Receive Date: 20041116
  Receipt Date: 20040720
  Transmission Date: 20050727
  Serious: No
  Sender: FDA-Public Use
  Company Number: S04-USA-04888-01

PATIENT
  Age: 80 Year
  Sex: Female

DRUGS (5)
  1. NAMENDA [Suspect]
     Indication: DEMENTIA
     Dosage: 5 MG QD PO
     Route: 048
     Dates: start: 20040520, end: 20040526
  2. NAMENDA [Suspect]
     Indication: DEMENTIA
     Dosage: 10 MG QD PO
     Route: 048
     Dates: start: 20040527, end: 20040602
  3. NAMENDA [Suspect]
     Indication: DEMENTIA
     Dosage: 5 MG QAM PO
     Route: 048
     Dates: start: 20040603, end: 20040609
  4. NAMENDA [Suspect]
     Indication: DEMENTIA
     Dosage: 10 MG QHS PO
     Route: 048
     Dates: start: 20040603, end: 20040609
  5. NAMENDA [Suspect]
     Indication: DEMENTIA
     Dosage: 10 MG BID PO
     Route: 048
     Dates: start: 20040610

REACTIONS (1)
  - DIZZINESS [None]
